FAERS Safety Report 10573860 (Version 1)
Quarter: 2014Q4

REPORT INFORMATION
  Report Type: Spontaneous
  Country: US (occurrence: US)
  Receive Date: 20141110
  Receipt Date: 20141110
  Transmission Date: 20150529
  Serious: Yes (Hospitalization)
  Sender: FDA-Public Use
  Company Number: US-AUROBINDO-AUR-APL-2014-11752

PATIENT
  Age: 51 Year
  Sex: Male

DRUGS (1)
  1. FLUOXETINE [Suspect]
     Active Substance: FLUOXETINE\FLUOXETINE HYDROCHLORIDE
     Indication: MAJOR DEPRESSION
     Dosage: 40 MG, DAILY
     Route: 065

REACTIONS (12)
  - Stupor [Recovered/Resolved]
  - Depressed level of consciousness [Recovered/Resolved]
  - Mutism [Recovered/Resolved]
  - Confusional state [Recovered/Resolved]
  - Catatonia [Recovered/Resolved]
  - Mental status changes [Recovered/Resolved]
  - Drug withdrawal syndrome [Recovered/Resolved]
  - Agitation [Recovered/Resolved]
  - Disorientation [Recovered/Resolved]
  - Speech disorder [Recovered/Resolved]
  - Delirium [Recovered/Resolved]
  - Echolalia [Recovered/Resolved]
